FAERS Safety Report 13877332 (Version 1)
Quarter: 2017Q3

REPORT INFORMATION
  Report Type: Spontaneous
  Country: CA (occurrence: CA)
  Receive Date: 20170817
  Receipt Date: 20170817
  Transmission Date: 20171127
  Serious: Yes (Other)
  Sender: FDA-Public Use
  Company Number: CA-TEVA-795949ACC

PATIENT
  Age: 42 Year
  Sex: Male
  Weight: 68 kg

DRUGS (1)
  1. CITALOPRAM [Suspect]
     Active Substance: CITALOPRAM HYDROBROMIDE
     Indication: DEPRESSION
     Dosage: 20 MILLIGRAM DAILY;
     Route: 048

REACTIONS (3)
  - Muscle rupture [Recovered/Resolved]
  - Mastication disorder [Recovered/Resolved]
  - Muscle fatigue [Recovered/Resolved]
